FAERS Safety Report 22769181 (Version 3)
Quarter: 2023Q4

REPORT INFORMATION
  Report Type: Spontaneous
  Country: US (occurrence: US)
  Receive Date: 20230731
  Receipt Date: 20231004
  Transmission Date: 20240110
  Serious: Yes (Hospitalization)
  Sender: FDA-Public Use
  Company Number: US-HORIZON THERAPEUTICS-HZN-2023-005735

PATIENT

DRUGS (8)
  1. PROCYSBI [Suspect]
     Active Substance: CYSTEAMINE BITARTRATE
     Indication: Cystinosis
     Dosage: FIRST DOSE
     Dates: start: 202012
  2. PROCYSBI [Suspect]
     Active Substance: CYSTEAMINE BITARTRATE
     Dosage: UNK ATTEMPTED TO BE GIVEN BID CONTINUOUSLY PRIOR TO AND AFTER THE EVENT 8 AM/PM
     Route: 048
  3. PROCYSBI [Suspect]
     Active Substance: CYSTEAMINE BITARTRATE
     Dosage: UNK, BID
     Route: 065
     Dates: start: 2023
  4. PROCYSBI [Suspect]
     Active Substance: CYSTEAMINE BITARTRATE
     Dosage: DOSE 13, 75 MG, BID
     Route: 065
     Dates: start: 2023
  5. ZYRTEC [Concomitant]
     Active Substance: CETIRIZINE HYDROCHLORIDE
     Indication: Seasonal allergy
     Dosage: 5 ML (TAKE 5 ML (5 MG) BY  MOUTH IN THE MORNING)
     Route: 048
  6. CYSTADROPS [Concomitant]
     Active Substance: CYSTEAMINE HYDROCHLORIDE
     Indication: Cystinosis
     Dosage: ADMINISTER 1 DROP INTO AFFECTED EYE(S) IN THE MORNING, AT NOON, IN THE EVENING, AND AT BEDTIME
  7. CELLCEPT [Concomitant]
     Active Substance: MYCOPHENOLATE MOFETIL
     Indication: Immunosuppression
     Dosage: 200 MG/ML, TAKE 1.6 ML (320 MG)  BY MOUTH EVERY 12  (TWELVE) HOURS
  8. PROGRAF [Concomitant]
     Active Substance: TACROLIMUS
     Indication: Immunosuppression
     Dosage: TAKE 1.2 ML (1.2 MG) BY  MOUTH IN THE MORNING  AND AT BEDTIME

REACTIONS (3)
  - Device occlusion [Unknown]
  - Treatment noncompliance [Unknown]
  - Circumstance or information capable of leading to medication error [Unknown]

NARRATIVE: CASE EVENT DATE: 20201201
